FAERS Safety Report 13177898 (Version 1)
Quarter: 2017Q1

REPORT INFORMATION
  Report Type: Spontaneous
  Country: US (occurrence: US)
  Receive Date: 20170201
  Receipt Date: 20170201
  Transmission Date: 20170428
  Serious: No
  Sender: FDA-Public Use
  Company Number: None

PATIENT
  Age: 68 Year
  Sex: Female

DRUGS (1)
  1. TALTZ [Suspect]
     Active Substance: IXEKIZUMAB
     Indication: PSORIASIS
     Dosage: 80MG WEEKS 4,6, 8 10 SQ
     Route: 058
     Dates: start: 20161025

REACTIONS (2)
  - Rash macular [None]
  - Drug effect decreased [None]

NARRATIVE: CASE EVENT DATE: 20170113
